FAERS Safety Report 13911557 (Version 1)
Quarter: 2017Q3

REPORT INFORMATION
  Report Type: Spontaneous
  Country: US (occurrence: US)
  Receive Date: 20170828
  Receipt Date: 20170828
  Transmission Date: 20171127
  Serious: No
  Sender: FDA-Public Use
  Company Number: US-ROCHE-1141620

PATIENT
  Sex: Male
  Weight: 23.1 kg

DRUGS (3)
  1. NUTROPIN AQ [Suspect]
     Active Substance: SOMATROPIN
     Dosage: DILUTED WITH 1 ML
     Route: 058
     Dates: start: 20001208
  2. NUTROPIN AQ [Suspect]
     Active Substance: SOMATROPIN
     Indication: GROWTH HORMONE DEFICIENCY
     Route: 065
     Dates: start: 19970926
  3. NUTROPIN AQ [Suspect]
     Active Substance: SOMATROPIN
     Indication: DWARFISM
     Dosage: CHANGED TO POWDER FORM
     Route: 065
     Dates: start: 200007, end: 200008

REACTIONS (3)
  - Pain [Unknown]
  - Headache [Unknown]
  - Drug ineffective [Unknown]
